FAERS Safety Report 6222209-7 (Version None)
Quarter: 2009Q2

REPORT INFORMATION
  Report Type: 
  Country: None (occurrence: None)
  Receive Date: 20090611
  Receipt Date: 20090601
  Transmission Date: 20091009
  Serious: Yes (Hospitalization, Other)
  Sender: FDA-Public Use
  Company Number: PHHY2009GB08831

PATIENT
  Sex: Male

DRUGS (2)
  1. CLOZARIL [Suspect]
     Indication: SCHIZOPHRENIA
     Dosage: 450 MG DAILY
     Route: 048
     Dates: start: 20050203, end: 20090305
  2. LITHIUM [Concomitant]

REACTIONS (4)
  - AGITATION [None]
  - BLOOD COUNT ABNORMAL [None]
  - MALAISE [None]
  - SLEEP DISORDER [None]
